FAERS Safety Report 10040149 (Version 2)
Quarter: 2014Q2

REPORT INFORMATION
  Report Type: Spontaneous
  Country: TR (occurrence: TR)
  Receive Date: 20140326
  Receipt Date: 20140429
  Transmission Date: 20141212
  Serious: Yes (Death, Other)
  Sender: FDA-Public Use
  Company Number: TR-CELGENEUS-161-21880-14033192

PATIENT
  Age: 57 Year
  Sex: Male

DRUGS (5)
  1. REVLIMID [Suspect]
     Indication: PLASMA CELL MYELOMA
     Route: 048
     Dates: start: 20120427, end: 20120521
  2. DEXAMETHASONE [Concomitant]
     Indication: PLASMA CELL MYELOMA
     Route: 065
     Dates: start: 201103
  3. DEXAMETHASONE [Concomitant]
     Route: 065
     Dates: start: 20120427
  4. VELCADE [Concomitant]
     Indication: PLASMA CELL MYELOMA
     Route: 065
     Dates: start: 201103
  5. VELCADE [Concomitant]
     Route: 065
     Dates: start: 20120427

REACTIONS (3)
  - Plasma cell myeloma [Fatal]
  - Renal failure acute [Unknown]
  - Thrombocytopenia [Unknown]
